FAERS Safety Report 18483186 (Version 1)
Quarter: 2020Q4

REPORT INFORMATION
  Report Type: Spontaneous
  Country: US (occurrence: US)
  Receive Date: 20201109
  Receipt Date: 20201109
  Transmission Date: 20210114
  Serious: No
  Sender: FDA-Public Use
  Company Number: US-ROCHE-2410741

PATIENT
  Sex: Male

DRUGS (1)
  1. DORNASE ALFA. [Suspect]
     Active Substance: DORNASE ALFA
     Indication: PRODUCT USED FOR UNKNOWN INDICATION
     Dosage: SOLUTION 1 MG/ML. INHALE 2.5ML (1 AMPOULE) INTO LUNGS VIA NEBULIZER TWICE A DAY.
     Route: 055
     Dates: start: 20181115

REACTIONS (1)
  - Product dose omission issue [Unknown]
